FAERS Safety Report 10360668 (Version 3)
Quarter: 2015Q1

REPORT INFORMATION
  Report Type: Report from Study
  Country: DE (occurrence: DE)
  Receive Date: 20140804
  Receipt Date: 20150126
  Transmission Date: 20150720
  Serious: Yes (Death, Hospitalization, Other)
  Sender: FDA-Public Use
  Company Number: DE-BRISTOL-MYERS SQUIBB COMPANY-19362201

PATIENT
  Age: 46 Year
  Sex: Male

DRUGS (8)
  1. PLACEBO [Suspect]
     Active Substance: UNSPECIFIED INGREDIENT
     Indication: NON-SMALL CELL LUNG CANCER
     Dosage: 10 MG/KG, QCYCLE
     Route: 042
     Dates: start: 20130808, end: 20131010
  2. BLINDED CARBOPLATIN [Suspect]
     Active Substance: CARBOPLATIN
     Indication: NON-SMALL CELL LUNG CANCER
     Dosage: AUC 6
     Route: 042
     Dates: start: 20130625, end: 20131010
  3. PLACEBO [Suspect]
     Active Substance: UNSPECIFIED INGREDIENT
     Indication: NON-SMALL CELL LUNG CANCER
     Dosage: 175 MG/M2, QCYCLE
     Route: 042
     Dates: start: 20130625, end: 20131010
  4. BLINDED IPILIMUMAB [Suspect]
     Active Substance: IPILIMUMAB
     Indication: NON-SMALL CELL LUNG CANCER
     Dosage: AUC 6
     Route: 042
     Dates: start: 20130625, end: 20131010
  5. BLINDED IPILIMUMAB [Suspect]
     Active Substance: IPILIMUMAB
     Indication: NON-SMALL CELL LUNG CANCER
     Dosage: 175 MG/M2, QCYCLE
     Route: 042
     Dates: start: 20130625, end: 20131010
  6. BLINDED IPILIMUMAB [Suspect]
     Active Substance: IPILIMUMAB
     Indication: NON-SMALL CELL LUNG CANCER
     Dosage: 10 MG/KG, QCYCLE
     Route: 042
     Dates: start: 20130808, end: 20131010
  7. PLACEBO [Suspect]
     Active Substance: UNSPECIFIED INGREDIENT
     Indication: NON-SMALL CELL LUNG CANCER
     Dosage: AUC 6
     Route: 042
     Dates: start: 20130625, end: 20131010
  8. BLINDED PACLITAXEL [Suspect]
     Active Substance: PACLITAXEL
     Indication: NON-SMALL CELL LUNG CANCER
     Dosage: 175 MG/M2, QCYCLE
     Route: 042
     Dates: start: 20130625, end: 20131010

REACTIONS (4)
  - Malignant neoplasm progression [Fatal]
  - Tachycardia [Recovered/Resolved with Sequelae]
  - Cardiac failure [Recovered/Resolved with Sequelae]
  - General physical health deterioration [Fatal]

NARRATIVE: CASE EVENT DATE: 20130903
